FAERS Safety Report 18406216 (Version 2)
Quarter: 2020Q4

REPORT INFORMATION
  Report Type: Report from Study
  Country: US (occurrence: US)
  Receive Date: 20201020
  Receipt Date: 20201104
  Transmission Date: 20210114
  Serious: Yes (Death)
  Sender: FDA-Public Use
  Company Number: US-RETROPHIN, INC.-2020RTN00120

PATIENT
  Age: 3 Month
  Sex: Female
  Weight: 6.2 kg

DRUGS (7)
  1. PRILOSEC [Concomitant]
     Active Substance: OMEPRAZOLE MAGNESIUM
     Dosage: UNK
     Dates: start: 20200904, end: 20200926
  2. ADEK MULTIVITAMIN [Concomitant]
     Dosage: UNK
     Dates: start: 20200707, end: 20200926
  3. LACOSAMIDE. [Concomitant]
     Active Substance: LACOSAMIDE
     Dosage: UNK
     Dates: start: 20200825, end: 20200926
  4. TOPAMAX [Concomitant]
     Active Substance: TOPIRAMATE
     Dosage: UNK
     Dates: start: 20200911, end: 20200926
  5. KEPPRA [Concomitant]
     Active Substance: LEVETIRACETAM
     Dosage: UNK
     Dates: start: 20200618, end: 20200926
  6. TRILEPTAL [Concomitant]
     Active Substance: OXCARBAZEPINE
     Dosage: UNK
     Dates: start: 20200708, end: 20200926
  7. CHOLIC ACID [Suspect]
     Active Substance: CHOLIC ACID
     Indication: CEREBROHEPATORENAL SYNDROME
     Dosage: 50 MG, 1X/DAY
     Dates: start: 20200717, end: 20200926

REACTIONS (2)
  - Cardiopulmonary failure [Fatal]
  - Seizure cluster [Fatal]

NARRATIVE: CASE EVENT DATE: 20200926
